FAERS Safety Report 18529103 (Version 1)
Quarter: 2020Q4

REPORT INFORMATION
  Report Type: Spontaneous
  Country: US (occurrence: US)
  Receive Date: 20201120
  Receipt Date: 20201120
  Transmission Date: 20210114
  Serious: No
  Sender: FDA-Public Use
  Company Number: US-NOVOPROD-749183

PATIENT
  Age: 19 Year
  Sex: Male

DRUGS (3)
  1. INSULIN ASPART FLEXPEN [Suspect]
     Active Substance: INSULIN ASPART
     Indication: TYPE 1 DIABETES MELLITUS
     Dosage: DEPENDS ON MEAL
     Route: 058
  2. INSULIN ASPART FLEXPEN [Suspect]
     Active Substance: INSULIN ASPART
     Dosage: NEW PEN
     Route: 058
  3. LANTUS [Concomitant]
     Active Substance: INSULIN GLARGINE
     Indication: TYPE 1 DIABETES MELLITUS
     Dosage: UNK
     Route: 058

REACTIONS (3)
  - Blood glucose fluctuation [Recovered/Resolved]
  - Malaise [Recovered/Resolved]
  - Liquid product physical issue [Recovered/Resolved]
